FAERS Safety Report 12412706 (Version 3)
Quarter: 2016Q2

REPORT INFORMATION
  Report Type: Other
  Country: DK (occurrence: DK)
  Receive Date: 20160527
  Receipt Date: 20160624
  Transmission Date: 20160815
  Serious: Yes (Other)
  Sender: FDA-Public Use
  Company Number: DK-PURDUE-GBR-2016-0036686

PATIENT
  Age: 25 Year
  Sex: Male

DRUGS (5)
  1. CHLORZOXAZONE. [Suspect]
     Active Substance: CHLORZOXAZONE
     Indication: NECK PAIN
     Dosage: 250 MG, TID
     Route: 065
  2. FENTANYL. [Suspect]
     Active Substance: FENTANYL
     Indication: NECK PAIN
     Dosage: 25 MCG, Q1H
     Route: 065
  3. MORPHINE SULFATE. [Suspect]
     Active Substance: MORPHINE SULFATE
     Indication: NECK PAIN
     Dosage: 20-40 MG DAILY
     Route: 065
  4. MORPHINE SULFATE. [Suspect]
     Active Substance: MORPHINE SULFATE
     Dosage: 40 MG, AS NEEDED
     Route: 065
  5. TRAMADOL HCL [Suspect]
     Active Substance: TRAMADOL HYDROCHLORIDE
     Indication: NECK PAIN
     Dosage: DAILY DOSE 150-400 MG
     Route: 065

REACTIONS (9)
  - Muscle spasms [Recovering/Resolving]
  - Drug ineffective [Recovering/Resolving]
  - Gait disturbance [Recovering/Resolving]
  - Spinal column injury [Recovering/Resolving]
  - Dizziness [Recovering/Resolving]
  - Sensory disturbance [Recovering/Resolving]
  - Secondary adrenocortical insufficiency [Recovering/Resolving]
  - Weight decreased [Recovering/Resolving]
  - Nausea [Recovering/Resolving]
